FAERS Safety Report 5173522-6 (Version None)
Quarter: 2006Q4

REPORT INFORMATION
  Report Type: 
  Country: None (occurrence: None)
  Receive Date: 20061214
  Receipt Date: 20061127
  Transmission Date: 20070319
  Serious: Yes (Hospitalization)
  Sender: FDA-Public Use
  Company Number: SG-RB-004508-06

PATIENT

DRUGS (1)
  1. SUBUTEX [Suspect]
     Indication: DRUG DEPENDENCE
     Dosage: DOSAGE UNKNOWN
     Route: 042

REACTIONS (6)
  - ABSCESS [None]
  - CELLULITIS [None]
  - DRUG ABUSER [None]
  - FOREIGN BODY TRAUMA [None]
  - THERAPEUTIC PRODUCT CONTAMINATION [None]
  - THROMBOPHLEBITIS [None]
